FAERS Safety Report 6257358-0 (Version None)
Quarter: 2009Q3

REPORT INFORMATION
  Report Type: 
  Country: None (occurrence: None)
  Receive Date: 20090706
  Receipt Date: 20090625
  Transmission Date: 20100115
  Serious: Yes (Other)
  Sender: FDA-Public Use
  Company Number: PHHY2009DE26462

PATIENT
  Age: 63 Year
  Sex: Female

DRUGS (6)
  1. EVEROLIMUS [Suspect]
     Indication: LIVER TRANSPLANT
  2. NEORAL [Concomitant]
     Indication: LIVER TRANSPLANT
     Dosage: 10 MG, BID
  3. NEORAL [Concomitant]
     Dosage: 30 MG, UNK
  4. PREDNISOLONE [Concomitant]
     Dosage: 30 MG, UNK
  5. MYCOPHENOLATE MOFETIL [Concomitant]
  6. STEROIDS NOS [Concomitant]

REACTIONS (10)
  - COUGH [None]
  - DYSPNOEA EXERTIONAL [None]
  - GENERAL PHYSICAL HEALTH DETERIORATION [None]
  - LUNG INFILTRATION [None]
  - OBLITERATIVE BRONCHIOLITIS [None]
  - PAIN [None]
  - PNEUMONITIS [None]
  - RALES [None]
  - TRAUMATIC FRACTURE [None]
  - VITAL CAPACITY DECREASED [None]
